FAERS Safety Report 16579149 (Version 1)
Quarter: 2019Q3

REPORT INFORMATION
  Report Type: Spontaneous
  Country: FR (occurrence: FR)
  Receive Date: 20190716
  Receipt Date: 20190716
  Transmission Date: 20191004
  Serious: Yes (Hospitalization, Other)
  Sender: FDA-Public Use
  Company Number: FR-BRISTOL-MYERS SQUIBB COMPANY-BMS-2019-068538

PATIENT
  Age: 45 Year
  Sex: Male
  Weight: 115 kg

DRUGS (12)
  1. IPRATROPIUM [IPRATROPIUM BROMIDE] [Suspect]
     Active Substance: IPRATROPIUM BROMIDE
     Indication: ASTHMA
     Dosage: 2 MILLIGRAM, TOTAL DAILY DOSE
     Route: 048
     Dates: start: 20190415
  2. AERIUS (DESLORATADINE) [Suspect]
     Active Substance: DESLORATADINE
     Indication: PRODUCT USED FOR UNKNOWN INDICATION
     Dosage: 5 MILLIGRAM, TOTAL DAILY DOSE
     Route: 048
  3. BISOPROLOL FUMARATE. [Suspect]
     Active Substance: BISOPROLOL FUMARATE
     Indication: ATRIAL FIBRILLATION
     Dosage: 2.5 MILLIGRAM, TOTAL DAILY DOSE
     Route: 048
     Dates: end: 20190603
  4. INNOVAIR [Suspect]
     Active Substance: BECLOMETHASONE DIPROPIONATE\FORMOTEROL
     Indication: ASTHMA
     Dosage: 1 DOSAGE FORM, TOTAL DAILY DOSE
     Route: 055
  5. LODOZ [Suspect]
     Active Substance: BISOPROLOL FUMARATE\HYDROCHLOROTHIAZIDE
     Indication: ATRIAL FIBRILLATION
     Dosage: 2 DOSAGE FORM, TOTAL DAILY DOSE
     Route: 048
     Dates: end: 20190605
  6. ELIQUIS [Suspect]
     Active Substance: APIXABAN
     Indication: CEREBROVASCULAR ACCIDENT PROPHYLAXIS
     Dosage: 10 MILLIGRAM, TOTAL DAILY DOSE
     Route: 048
  7. SPIRIVA RESPIMAT [Suspect]
     Active Substance: TIOTROPIUM BROMIDE
     Indication: ASTHMA
     Dosage: 5 MICROGRAM, TOTAL DAILY DOSE
     Route: 055
  8. TWYNSTA [Suspect]
     Active Substance: AMLODIPINE BESYLATE\TELMISARTAN
     Indication: HYPERTENSION
     Dosage: 1 DOSAGE FORM, TOTAL DAILY DOSE
     Route: 048
     Dates: end: 20190607
  9. PHYSIOTENS [Suspect]
     Active Substance: MOXONIDINE
     Indication: HYPERTENSION
     Dosage: 0.4 MILLIGRAM, TOTAL DAILY DOSE
     Route: 048
     Dates: end: 20190607
  10. SINGULAIR [Suspect]
     Active Substance: MONTELUKAST SODIUM
     Indication: ASTHMA
     Dosage: 10 MILLIGRAM, TOTAL DAILY DOSE
     Route: 048
  11. TERBUTALINE [TERBUTALINE SULFATE] [Suspect]
     Active Substance: TERBUTALINE SULFATE
     Indication: ASTHMA
     Dosage: 20 MILLIGRAM, TOTAL DAILY DOSE
     Route: 048
     Dates: start: 20190415
  12. INEXIUM [ESOMEPRAZOLE MAGNESIUM] [Suspect]
     Active Substance: ESOMEPRAZOLE MAGNESIUM
     Indication: PEPTIC ULCER
     Dosage: 120 MILLIGRAM, TOTAL DAILY DOSE
     Route: 048
     Dates: end: 20190607

REACTIONS (2)
  - Hyperkalaemia [Recovered/Resolved]
  - Hyperkaliuria [Recovered/Resolved]

NARRATIVE: CASE EVENT DATE: 20190603
